FAERS Safety Report 5885834-9 (Version None)
Quarter: 2008Q3

REPORT INFORMATION
  Report Type: 
  Country: None (occurrence: None)
  Receive Date: 20080917
  Receipt Date: 20080911
  Transmission Date: 20090109
  Serious: Yes (Death, Hospitalization)
  Sender: FDA-Public Use
  Company Number: FR-JNJFOC-20080902715

PATIENT
  Sex: Female

DRUGS (3)
  1. RISPERDAL [Suspect]
     Indication: SCHIZOPHRENIA, PARANOID TYPE
     Route: 048
  2. LOXAPINE HCL [Concomitant]
     Route: 065
  3. RIVOTRIL [Concomitant]
     Route: 065

REACTIONS (3)
  - ANXIETY [None]
  - COMPLETED SUICIDE [None]
  - DELIRIUM [None]
